FAERS Safety Report 17944179 (Version 2)
Quarter: 2020Q3

REPORT INFORMATION
  Report Type: Report from Study
  Country: PH (occurrence: PH)
  Receive Date: 20200625
  Receipt Date: 20200706
  Transmission Date: 20201103
  Serious: Yes (Death, Other)
  Sender: FDA-Public Use
  Company Number: PH-OTSUKA-2020_015288

PATIENT
  Age: 14 Year
  Sex: Male

DRUGS (2)
  1. VALPARIN [Suspect]
     Active Substance: VALPROATE SODIUM
     Indication: PRODUCT USED FOR UNKNOWN INDICATION
     Dosage: UNK
     Route: 065
  2. ARIPIPRAZOLE. [Suspect]
     Active Substance: ARIPIPRAZOLE
     Indication: MOOD SWINGS
     Dosage: 10 MG, QD (ONE TABLET PER DAY)
     Route: 065
     Dates: start: 201804

REACTIONS (5)
  - Circulatory collapse [Unknown]
  - Completed suicide [Fatal]
  - Product use in unapproved indication [Unknown]
  - Depressed mood [Unknown]
  - Insomnia [Unknown]

NARRATIVE: CASE EVENT DATE: 201804
